FAERS Safety Report 21176333 (Version 1)
Quarter: 2022Q3

REPORT INFORMATION
  Report Type: Spontaneous
  Country: JP (occurrence: JP)
  Receive Date: 20220805
  Receipt Date: 20220805
  Transmission Date: 20221027
  Serious: Yes (Other)
  Sender: FDA-Public Use
  Company Number: JP-SCALL-2022-JP-000316

PATIENT
  Age: 75 Year
  Sex: Female

DRUGS (1)
  1. RABEPRAZOLE SODIUM [Suspect]
     Active Substance: RABEPRAZOLE SODIUM
     Indication: Product used for unknown indication
     Route: 048
     Dates: start: 202110, end: 202110

REACTIONS (1)
  - Enterocolitis haemorrhagic [Unknown]

NARRATIVE: CASE EVENT DATE: 20211001
